FAERS Safety Report 9097976 (Version 4)
Quarter: 2014Q2

REPORT INFORMATION
  Report Type: Spontaneous
  Country: US (occurrence: US)
  Receive Date: 20130212
  Receipt Date: 20140508
  Transmission Date: 20141212
  Serious: Yes (Other)
  Sender: FDA-Public Use
  Company Number: US-PFIZER INC-2013049600

PATIENT
  Age: 52 Year
  Sex: Female
  Weight: 55.33 kg

DRUGS (1)
  1. LYRICA [Suspect]
     Indication: NEURALGIA
     Dosage: 100 MG, 3X/DAY

REACTIONS (4)
  - Blindness [Unknown]
  - Productive cough [Unknown]
  - Tooth disorder [Unknown]
  - Depressed mood [Unknown]
